FAERS Safety Report 8121162-9 (Version None)
Quarter: 2012Q1

REPORT INFORMATION
  Report Type: 
  Country: None (occurrence: None)
  Receive Date: 20120208
  Receipt Date: 20120130
  Transmission Date: 20120608
  Serious: Yes (Other)
  Sender: FDA-Public Use
  Company Number: BE-BAYER-2012-008187

PATIENT
  Sex: Female
  Weight: 78 kg

DRUGS (6)
  1. NEXAVAR [Suspect]
     Indication: THYROID CANCER
     Dosage: 400 MG, BID
     Dates: start: 20110921
  2. EZETIMIBE [Concomitant]
     Indication: BLOOD CHOLESTEROL INCREASED
  3. LEVOTHYROXINE SODIUM [Concomitant]
     Dosage: DAILY DOSE 175 ?G
  4. SANDOZ CALCIUM + D [Concomitant]
     Dosage: 2X600 MG CALCIUM AND VIT D 400 IE
  5. NEXAVAR [Suspect]
     Dosage: 200 MG, BID
     Dates: start: 20111008
  6. ONE ALPHA [Concomitant]
     Dosage: 1X2+#956;G PD -}1X3 +#956;G

REACTIONS (3)
  - LANGERHANS' CELL HISTIOCYTOSIS [None]
  - DIARRHOEA [None]
  - PALMAR-PLANTAR ERYTHRODYSAESTHESIA SYNDROME [None]
